FAERS Safety Report 4595382-4 (Version None)
Quarter: 2005Q1

REPORT INFORMATION
  Report Type: 
  Country: None (occurrence: None)
  Receive Date: 20050224
  Receipt Date: 20050201
  Transmission Date: 20050727
  Serious: Yes (Other)
  Sender: FDA-Public Use
  Company Number: USA041080785

PATIENT
  Age: 83 Year
  Sex: Female

DRUGS (9)
  1. ZYPREXA [Suspect]
     Indication: BIPOLAR DISORDER
     Dosage: 15 MG DAY
     Route: 048
  2. AREICEPT                 (DONEPEZIL HYDROCHLORIDE) [Concomitant]
  3. NAMENDA                       (MEMANTINE HYDROCHLORIDE) [Concomitant]
  4. ZOLOFT [Concomitant]
  5. VITAMIN E [Concomitant]
  6. MULTI-VITAMIN [Concomitant]
  7. ASPIRIN [Concomitant]
  8. TOPROL-XL [Concomitant]
  9. IMDUR [Concomitant]

REACTIONS (3)
  - BLOOD CREATININE INCREASED [None]
  - FEELING ABNORMAL [None]
  - MYOCARDIAL INFARCTION [None]
